FAERS Safety Report 4878613-2 (Version None)
Quarter: 2006Q1

REPORT INFORMATION
  Report Type: 
  Country: None (occurrence: None)
  Receive Date: 20060110
  Receipt Date: 20060110
  Transmission Date: 20060701
  Serious: Yes (Disabling)
  Sender: FDA-Public Use
  Company Number: None

PATIENT
  Sex: Female
  Weight: 48.5349 kg

DRUGS (21)
  1. REMICADE [Suspect]
     Indication: CROHN'S DISEASE
     Dosage: 5MG/KG OR 300MG   ONCE   IV DRIP
     Route: 041
     Dates: start: 20010101
  2. REMICADE [Suspect]
     Indication: CROHN'S DISEASE
     Dosage: 5MG/KG OR 300MG    Q8WK    IV DRIP
     Route: 041
     Dates: start: 20051018, end: 20051213
  3. IMURAN [Concomitant]
  4. WELLBUTRIN XL [Concomitant]
  5. CIPRO [Concomitant]
  6. FIORICET [Concomitant]
  7. SINGULAIR [Concomitant]
  8. DIFLUCAN [Concomitant]
  9. ORAL BIRTH CONTROL [Concomitant]
  10. PERI-COLACE [Concomitant]
  11. CALCIUM W/D [Concomitant]
  12. NEXIUM [Concomitant]
  13. FOSAMAX [Concomitant]
  14. EFFEXOR [Concomitant]
  15. KLONOPIN [Concomitant]
  16. MULTI-VITAMIN [Concomitant]
  17. ENTOCORT [Concomitant]
  18. LORTAB [Concomitant]
  19. TRIAMTERENE AND HYDROCHLOROTHIAZIDE [Concomitant]
  20. B12 [Concomitant]
  21. ALLERGY INJECTIONS [Concomitant]

REACTIONS (10)
  - ABDOMINAL PAIN UPPER [None]
  - ARTHRALGIA [None]
  - CHEST DISCOMFORT [None]
  - DYSPHAGIA [None]
  - HYPERSENSITIVITY [None]
  - INFUSION RELATED REACTION [None]
  - MUSCULOSKELETAL STIFFNESS [None]
  - NAUSEA [None]
  - PHARYNGOLARYNGEAL PAIN [None]
  - PYREXIA [None]
